FAERS Safety Report 8206554-1 (Version None)
Quarter: 2012Q1

REPORT INFORMATION
  Report Type: 
  Country: None (occurrence: None)
  Receive Date: 20120313
  Receipt Date: 20120308
  Transmission Date: 20120608
  Serious: Yes (Hospitalization, Other)
  Sender: FDA-Public Use
  Company Number: US-MERCK-1201USA03682

PATIENT
  Age: 45 Year
  Sex: Male
  Weight: 104 kg

DRUGS (7)
  1. SIMVASTATIN [Concomitant]
     Route: 065
  2. NOVOLIN 70/30 [Concomitant]
     Route: 065
  3. COZAAR [Suspect]
     Indication: HYPERTENSION
     Route: 048
     Dates: start: 20070101
  4. JANUMET [Concomitant]
     Route: 065
  5. TOPROL-XL [Concomitant]
     Route: 065
  6. NEXIUM [Concomitant]
     Route: 065
  7. CABERGOLINE [Concomitant]
     Route: 065

REACTIONS (9)
  - NAUSEA [None]
  - PNEUMONIA STREPTOCOCCAL [None]
  - INFLUENZA LIKE ILLNESS [None]
  - CHEST PAIN [None]
  - TACHYCARDIA [None]
  - VOMITING [None]
  - COUGH [None]
  - HEART RATE INCREASED [None]
  - PYREXIA [None]
